FAERS Safety Report 4552968-0 (Version None)
Quarter: 2005Q1

REPORT INFORMATION
  Report Type: 
  Country: None (occurrence: None)
  Receive Date: 20050113
  Receipt Date: 20050105
  Transmission Date: 20050727
  Serious: Yes (Hospitalization)
  Sender: FDA-Public Use
  Company Number: 2005005105

PATIENT
  Age: 12 Year
  Sex: Male
  Weight: 54.3 kg

DRUGS (4)
  1. SOMATROPIN POWDER, STERILE (SOMATROPIN) [Suspect]
     Indication: RENAL FAILURE CHRONIC
     Dosage: 1 MG, 1 D, SUBCUTANEOUS
     Route: 058
     Dates: start: 19950522
  2. MULTIBIONTA (ASCORBIC ACID, CALCIUM PANTOTHENATE, CYANOCOBALAMIN, NICO [Concomitant]
  3. AMOXICILLIN [Concomitant]
  4. CALCIUM ACETATE (CALCIUM ACETATE) [Concomitant]

REACTIONS (1)
  - PYELONEPHRITIS [None]
